FAERS Safety Report 15391706 (Version 1)
Quarter: 2018Q3

REPORT INFORMATION
  Report Type: Spontaneous
  Country: US (occurrence: US)
  Receive Date: 20180910
  Receipt Date: 20180910
  Transmission Date: 20181010
  Serious: Yes (Hospitalization)
  Sender: FDA-Public Use
  Company Number: None

PATIENT
  Age: 52 Year
  Sex: Female
  Weight: 101.25 kg

DRUGS (10)
  1. METFORMIN 1000 MG BID AC [Concomitant]
  2. METOPROLOL SUCCINATE 25 MG DAILY [Concomitant]
  3. LISINOPRIL 10 MG DAILY [Concomitant]
  4. INSULIN GLARGINE 65 UNITS PM [Concomitant]
  5. EZETIMIBE 10 MG DAILY [Concomitant]
  6. ASPIRIN 81 MG DAILY [Concomitant]
  7. MAGNESIUM OXIDE 400 MG TWICE DAILY [Concomitant]
  8. EXENATIDE. [Suspect]
     Active Substance: EXENATIDE
     Indication: TYPE 2 DIABETES MELLITUS
     Route: 058
  9. INSULIN ASPART 25 UNITS AC [Concomitant]
  10. ERGOCALCIFEROL 50,000 UNITS WEEKLY [Concomitant]

REACTIONS (1)
  - Pancreatitis acute [None]

NARRATIVE: CASE EVENT DATE: 20180426
